FAERS Safety Report 6178903-X (Version None)
Quarter: 2009Q2

REPORT INFORMATION
  Report Type: 
  Country: None (occurrence: None)
  Receive Date: 20090505
  Receipt Date: 20090422
  Transmission Date: 20091009
  Serious: Yes (Hospitalization)
  Sender: FDA-Public Use
  Company Number: UA-PFIZER INC-2009196595

PATIENT
  Sex: Male
  Weight: 27 kg

DRUGS (1)
  1. TIMOLOL MALEATE [Suspect]
     Indication: DEVELOPMENTAL GLAUCOMA
     Dosage: 1 DF, 2X/DAY
     Route: 047
     Dates: start: 20090210, end: 20090211

REACTIONS (2)
  - DEVELOPMENTAL GLAUCOMA [None]
  - EYE HAEMORRHAGE [None]
